FAERS Safety Report 9961752 (Version 1)
Quarter: 2014Q1

REPORT INFORMATION
  Report Type: Report from Study
  Country: US (occurrence: US)
  Receive Date: 20140305
  Receipt Date: 20140305
  Transmission Date: 20141002
  Serious: No
  Sender: FDA-Public Use
  Company Number: US-ABBVIE-13P-163-1111189-00

PATIENT
  Age: 67 Year
  Sex: Male
  Weight: 135.75 kg

DRUGS (6)
  1. HUMIRA [Suspect]
     Indication: PSORIASIS
     Route: 058
     Dates: start: 201210, end: 201305
  2. SIMVASTATIN [Concomitant]
     Indication: BLOOD CHOLESTEROL INCREASED
  3. LOSARTAN [Concomitant]
     Indication: HYPERTENSION
  4. OSTEO BIFLEX [Concomitant]
     Indication: MUSCULOSKELETAL DISCOMFORT
  5. OSTEO BIFLEX [Concomitant]
     Indication: MUSCULOSKELETAL DISCOMFORT
  6. VITAMIN D [Concomitant]
     Indication: VITAMIN SUPPLEMENTATION

REACTIONS (1)
  - Drug ineffective [Not Recovered/Not Resolved]
